FAERS Safety Report 20689783 (Version 1)
Quarter: 2022Q2

REPORT INFORMATION
  Report Type: Spontaneous
  Country: US (occurrence: None)
  Receive Date: 20220407
  Receipt Date: 20220407
  Transmission Date: 20220720
  Serious: No
  Sender: FDA-Public Use
  Company Number: None

PATIENT
  Sex: Female
  Weight: 88.65 kg

DRUGS (12)
  1. ZONISAMIDE [Suspect]
     Active Substance: ZONISAMIDE
     Indication: Migraine
     Dosage: OTHER QUANTITY : 3 CAPSULE(S);?FREQUENCY : AT BEDTIME;?
     Route: 048
     Dates: start: 20220217, end: 20220407
  2. SIMVASTATIN [Concomitant]
     Active Substance: SIMVASTATIN
  3. Flexeril levothyroxine [Concomitant]
  4. Klonopin as needed Zanaflex [Concomitant]
  5. EFFEXOR [Concomitant]
     Active Substance: VENLAFAXINE HYDROCHLORIDE
  6. VITAMIN D [Concomitant]
     Active Substance: VITAMIN D NOS
  7. Bariatric multivitamin [Concomitant]
  8. CALCIUM [Concomitant]
     Active Substance: CALCIUM
  9. VITAMIN B12 [Concomitant]
     Active Substance: CYANOCOBALAMIN
  10. IRON [Concomitant]
     Active Substance: IRON
  11. BENADRYL [Concomitant]
     Active Substance: DIPHENHYDRAMINE HYDROCHLORIDE
  12. TYLENOL [Concomitant]
     Active Substance: ACETAMINOPHEN

REACTIONS (8)
  - Somnolence [None]
  - Thirst [None]
  - Tongue disorder [None]
  - Tongue discomfort [None]
  - Oral disorder [None]
  - Tooth fracture [None]
  - Ageusia [None]
  - Sensory disturbance [None]
